FAERS Safety Report 19909661 (Version 1)
Quarter: 2021Q4

REPORT INFORMATION
  Report Type: Spontaneous
  Country: AU (occurrence: AU)
  Receive Date: 20211002
  Receipt Date: 20211002
  Transmission Date: 20220304
  Serious: Yes (Other)
  Sender: FDA-Public Use
  Company Number: AU-ALXN-A202110790

PATIENT
  Age: 11 Year
  Sex: Female

DRUGS (1)
  1. SOLIRIS [Suspect]
     Active Substance: ECULIZUMAB
     Indication: Atypical haemolytic uraemic syndrome
     Dosage: UNK
     Route: 065

REACTIONS (3)
  - End stage renal disease [Unknown]
  - Catheter site thrombosis [Unknown]
  - Poor venous access [Unknown]
